FAERS Safety Report 7597394-5 (Version None)
Quarter: 2011Q3

REPORT INFORMATION
  Report Type: 
  Country: None (occurrence: None)
  Receive Date: 20110708
  Receipt Date: 20110624
  Transmission Date: 20111222
  Serious: Yes (Disabling)
  Sender: FDA-Public Use
  Company Number: PHHY2011DK50987

PATIENT
  Age: 9 Year
  Sex: Male
  Weight: 29 kg

DRUGS (2)
  1. RITALIN TAB [Suspect]
     Dosage: 20 MG, UNK
     Route: 048
     Dates: start: 20110525
  2. RITALIN TAB [Suspect]
     Indication: ATTENTION DEFICIT/HYPERACTIVITY DISORDER
     Dosage: 10 MG, UNK
     Route: 048
     Dates: start: 20110518, end: 20110524

REACTIONS (3)
  - AGGRESSION [None]
  - AGITATION [None]
  - DEPRESSED MOOD [None]
